FAERS Safety Report 10494251 (Version 4)
Quarter: 2014Q4

REPORT INFORMATION
  Report Type: Spontaneous
  Country: US (occurrence: US)
  Receive Date: 20141003
  Receipt Date: 20141212
  Transmission Date: 20150528
  Serious: Yes (Hospitalization, Disabling, Other)
  Sender: FDA-Public Use
  Company Number: US-GLAXOSMITHKLINE-A1090655A

PATIENT
  Age: 92 Year
  Sex: Female
  Weight: 73.92 kg

DRUGS (14)
  1. ALBUTEROL NEBULIZER [Concomitant]
     Active Substance: ALBUTEROL
  2. SYNTHROID [Concomitant]
     Active Substance: LEVOTHYROXINE SODIUM
  3. PROTONIX [Concomitant]
     Active Substance: PANTOPRAZOLE SODIUM
  4. POTASSIUM [Concomitant]
     Active Substance: POTASSIUM
  5. MAG-OX [Concomitant]
  6. ANORO ELLIPTA [Suspect]
     Active Substance: UMECLIDINIUM BROMIDE\VILANTEROL TRIFENATATE
     Indication: CHRONIC OBSTRUCTIVE PULMONARY DISEASE
     Dosage: UNK, U
     Dates: start: 20140911
  7. ATROVENT [Concomitant]
     Active Substance: IPRATROPIUM BROMIDE
  8. COUMADIN [Concomitant]
     Active Substance: WARFARIN SODIUM
  9. CITRACAL [Concomitant]
     Active Substance: CALCIUM CITRATE
  10. LASIX [Concomitant]
     Active Substance: FUROSEMIDE
  11. ADVAIR HFA [Suspect]
     Active Substance: FLUTICASONE PROPIONATE\SALMETEROL XINAFOATE
     Indication: CHRONIC OBSTRUCTIVE PULMONARY DISEASE
     Dosage: 1 PUFF(S), BID
     Route: 055
     Dates: end: 20140911
  12. ADVAIR HFA [Suspect]
     Active Substance: FLUTICASONE PROPIONATE\SALMETEROL XINAFOATE
     Dosage: UNK
     Dates: start: 20140927
  13. METOPROLOL [Concomitant]
     Active Substance: METOPROLOL
  14. MULTIVITAMIN [Concomitant]
     Active Substance: VITAMINS

REACTIONS (3)
  - Fall [Recovering/Resolving]
  - Open fracture [Recovering/Resolving]
  - Fluid retention [Unknown]

NARRATIVE: CASE EVENT DATE: 201406
